FAERS Safety Report 4556549-4 (Version None)
Quarter: 2005Q1

REPORT INFORMATION
  Report Type: 
  Country: None (occurrence: None)
  Receive Date: 20050118
  Receipt Date: 20050107
  Transmission Date: 20050727
  Serious: Yes (Hospitalization)
  Sender: FDA-Public Use
  Company Number: 2003011633

PATIENT
  Age: 74 Year
  Sex: Male
  Weight: 86.4 kg

DRUGS (16)
  1. ATORVASTATIN (ATORVASTATIN) [Suspect]
     Indication: CORONARY ARTERY DISEASE
     Dosage: 10 MG (1 IN 1 D), ORAL
     Route: 048
     Dates: start: 19990204, end: 19990405
  2. METOPROLOL [Concomitant]
  3. TERAZOSIN [Concomitant]
  4. ACETYLSALICYLIC ACID SRT [Concomitant]
  5. MOMETASONE [Concomitant]
  6. ASCORBIC ACID [Concomitant]
  7. TOCOPHEROL CONCENTRATE CAP [Concomitant]
  8. ERGOCALCIFEROL [Concomitant]
  9. FUROSEMIDE [Concomitant]
  10. TYLENOL [Concomitant]
  11. TEMAZEPAM [Concomitant]
  12. FELODIPINE [Concomitant]
  13. RABEPRAZOLE SODIUM [Concomitant]
  14. SERTRALINE HCL [Concomitant]
  15. CELECOXIB [Concomitant]
  16. CYCLOBENZAPRINE HYDROCHLORIDE [Concomitant]

REACTIONS (2)
  - CHOLECYSTITIS [None]
  - CHOLELITHIASIS [None]
